FAERS Safety Report 10049002 (Version 2)
Quarter: 2014Q2

REPORT INFORMATION
  Report Type: Spontaneous
  Country: GB (occurrence: GB)
  Receive Date: 20140331
  Receipt Date: 20140512
  Transmission Date: 20141212
  Serious: Yes (Life-Threatening)
  Sender: FDA-Public Use
  Company Number: GB-ABBVIE-14P-167-1219320-00

PATIENT
  Age: 69 Year
  Sex: Female

DRUGS (17)
  1. CLARITH [Suspect]
     Indication: PRODUCT USED FOR UNKNOWN INDICATION
     Dosage: COMMENCED BY GP
     Route: 048
     Dates: start: 20131125, end: 20131201
  2. CIPROFLOXACIN [Suspect]
     Indication: SEPSIS
     Route: 048
     Dates: start: 20140108, end: 20140117
  3. CIPROFLOXACIN [Suspect]
     Route: 048
     Dates: start: 20140120, end: 20140122
  4. GENTAMICIN [Suspect]
     Indication: PYELONEPHRITIS
     Route: 040
     Dates: start: 20140106, end: 20140107
  5. TRIMETHOPRIM [Suspect]
     Indication: URINARY TRACT INFECTION
     Dosage: 200 MG (TOTAL). 200 MG STAT DOSE
     Route: 048
     Dates: start: 20131230
  6. VANCOMYCIN [Suspect]
     Indication: SEPSIS
     Dosage: VARIABLE
     Route: 041
     Dates: start: 20140108, end: 20140122
  7. ASPIRIN [Concomitant]
     Indication: PRODUCT USED FOR UNKNOWN INDICATION
  8. CARBOCISTEINE [Concomitant]
     Indication: PRODUCT USED FOR UNKNOWN INDICATION
  9. DIGOXIN [Concomitant]
     Indication: PRODUCT USED FOR UNKNOWN INDICATION
  10. FERROUS SULPHATE [Concomitant]
     Indication: PRODUCT USED FOR UNKNOWN INDICATION
  11. ISOSORBIDE MONONITRATE [Concomitant]
     Indication: PRODUCT USED FOR UNKNOWN INDICATION
  12. METFORMIN [Concomitant]
     Indication: PRODUCT USED FOR UNKNOWN INDICATION
  13. MORPHINE [Concomitant]
     Indication: PRODUCT USED FOR UNKNOWN INDICATION
  14. PIOGLITAZONE [Concomitant]
     Indication: PRODUCT USED FOR UNKNOWN INDICATION
  15. SIMVASTATIN [Concomitant]
     Indication: PRODUCT USED FOR UNKNOWN INDICATION
  16. TIOTROPIUM [Concomitant]
     Indication: PRODUCT USED FOR UNKNOWN INDICATION
  17. TRAMADOL [Concomitant]
     Indication: PRODUCT USED FOR UNKNOWN INDICATION

REACTIONS (1)
  - Clostridium difficile infection [Not Recovered/Not Resolved]
